FAERS Safety Report 9394401 (Version 1)
Quarter: 2013Q3

REPORT INFORMATION
  Report Type: Spontaneous
  Country: US (occurrence: None)
  Receive Date: 20130709
  Receipt Date: 20130709
  Transmission Date: 20140515
  Serious: Yes (Life-Threatening, Other)
  Sender: FDA-Public Use
  Company Number: None

PATIENT
  Age: 13 None
  Sex: Female

DRUGS (4)
  1. FLUOXETINE [Suspect]
     Indication: ANXIETY
     Dosage: 20 MG CAPS EVERY MORNING BY MOUTH
     Route: 048
     Dates: start: 20130615, end: 20130619
  2. MULTI-VITAMIN [Concomitant]
  3. OMEGA 3-6-9 [Concomitant]
  4. BIOTIN [Concomitant]

REACTIONS (6)
  - Urticaria [None]
  - Local swelling [None]
  - Urticaria [None]
  - Local swelling [None]
  - Lip swelling [None]
  - Dyspnoea [None]
